FAERS Safety Report 17570692 (Version 1)
Quarter: 2020Q1

REPORT INFORMATION
  Report Type: Spontaneous
  Country: US (occurrence: US)
  Receive Date: 20200323
  Receipt Date: 20200323
  Transmission Date: 20200409
  Serious: No
  Sender: FDA-Public Use
  Company Number: US-BAYER-2020-048949

PATIENT
  Age: 79 Year
  Sex: Female

DRUGS (4)
  1. VITAMINS NOS [Concomitant]
     Active Substance: VITAMINS
  2. DULCOLAX (BISACODYL) [Concomitant]
     Active Substance: BISACODYL
  3. PSYLLIUM HYDROPHILIC MUCILLOID [Concomitant]
     Active Substance: PSYLLIUM HUSK
  4. MIRALAX [Suspect]
     Active Substance: POLYETHYLENE GLYCOL 3350
     Indication: GASTROINTESTINAL DISORDER
     Dosage: 17 G
     Route: 048
     Dates: start: 20200320

REACTIONS (2)
  - Headache [Not Recovered/Not Resolved]
  - Abdominal pain upper [Not Recovered/Not Resolved]

NARRATIVE: CASE EVENT DATE: 20200320
